FAERS Safety Report 8033804-7 (Version None)
Quarter: 2012Q1

REPORT INFORMATION
  Report Type: 
  Country: None (occurrence: None)
  Receive Date: 20120110
  Receipt Date: 20120105
  Transmission Date: 20120608
  Serious: Yes (Other)
  Sender: FDA-Public Use
  Company Number: US-PFIZER INC-2012004446

PATIENT
  Sex: Female
  Weight: 63.492 kg

DRUGS (2)
  1. GABAPENTIN [Suspect]
     Indication: CONVULSION
     Dosage: 300 MG NINE TIMES A DAY
     Dates: start: 20000101
  2. PAMIDRONATE DISODIUM [Concomitant]
     Indication: OSTEOPOROSIS
     Dosage: 90 MG ONCE EVERY 6 MONTHS
     Dates: start: 20110101

REACTIONS (2)
  - DRUG INEFFECTIVE [None]
  - CONVULSION [None]
